FAERS Safety Report 5067530-3 (Version None)
Quarter: 2006Q3

REPORT INFORMATION
  Report Type: 
  Country: None (occurrence: None)
  Receive Date: 20060731
  Receipt Date: 20060710
  Transmission Date: 20061208
  Serious: Yes (Hospitalization)
  Sender: FDA-Public Use
  Company Number: US200607001448

PATIENT
  Age: 63 Year
  Sex: Female

DRUGS (5)
  1. EVISTA [Suspect]
     Indication: OSTEOPOROSIS
     Dates: start: 20050401
  2. FORTEO [Suspect]
     Indication: OSTEOPOROSIS
     Dates: start: 20051101
  3. FORTEO [Concomitant]
  4. MIACALCIN [Suspect]
  5. ACTONEL [Concomitant]

REACTIONS (4)
  - DIZZINESS [None]
  - INFLAMMATION [None]
  - PNEUMONIA [None]
  - SPINAL FRACTURE [None]
